FAERS Safety Report 7331989-9 (Version None)
Quarter: 2011Q1

REPORT INFORMATION
  Report Type: 
  Country: None (occurrence: None)
  Receive Date: 20110304
  Receipt Date: 20100520
  Transmission Date: 20110831
  Serious: Yes (Other)
  Sender: FDA-Public Use
  Company Number: US-PFIZER INC-2010057698

PATIENT
  Sex: Female

DRUGS (6)
  1. DILANTIN [Suspect]
     Indication: CONVULSION
     Dosage: UNK
     Route: 048
     Dates: start: 19891013
  2. DILANTIN [Suspect]
     Dosage: 32.4 MG, 2X/DAY
     Route: 048
     Dates: start: 20081009
  3. DILANTIN [Suspect]
     Dosage: 300 MG, 4X/DAY
     Route: 048
     Dates: start: 19891026
  4. DILANTIN [Suspect]
     Dosage: 100 MG, 3X/DAY
     Route: 048
     Dates: start: 20050523
  5. DILANTIN [Suspect]
     Dosage: 300 MG, UNK
     Route: 048
     Dates: start: 20081008
  6. DILANTIN [Suspect]
     Dosage: 100 MG, 3X/DAY
     Route: 048
     Dates: start: 20081009

REACTIONS (1)
  - STEVENS-JOHNSON SYNDROME [None]
